FAERS Safety Report 20416601 (Version 1)
Quarter: 2022Q1

REPORT INFORMATION
  Report Type: Other
  Country: CA (occurrence: None)
  Receive Date: 20220202
  Receipt Date: 20220202
  Transmission Date: 20220423
  Serious: Yes (Other)
  Sender: FDA-Public Use
  Company Number: CA-ROCHE-3010849

PATIENT
  Sex: Male

DRUGS (15)
  1. ACTEMRA [Suspect]
     Active Substance: TOCILIZUMAB
     Indication: Rheumatoid arthritis
     Dosage: DRUG DOSE FIRST ADMINISTERED IS 400 MG MILLIGRAM(S)
     Route: 042
     Dates: start: 20190704, end: 20200206
  2. ACTEMRA [Suspect]
     Active Substance: TOCILIZUMAB
     Route: 042
     Dates: start: 20200305
  3. AVASTIN [Concomitant]
     Active Substance: BEVACIZUMAB
  4. CALCIUM\CHOLECALCIFEROL [Concomitant]
     Active Substance: CALCIUM\CHOLECALCIFEROL
  5. FOLIC ACID [Concomitant]
     Active Substance: FOLIC ACID
     Route: 048
  6. LANTUS [Concomitant]
     Active Substance: INSULIN GLARGINE
  7. METHOTREXATE [Concomitant]
     Active Substance: METHOTREXATE
     Route: 048
  8. NIFEDIPINE [Concomitant]
     Active Substance: NIFEDIPINE
     Route: 065
  9. OMEPRAZOLE [Concomitant]
     Active Substance: OMEPRAZOLE
  10. PREDNISONE [Concomitant]
     Active Substance: PREDNISONE
     Route: 048
  11. PREGABALIN [Concomitant]
     Active Substance: PREGABALIN
     Route: 048
  12. RISEDRONATE SODIUM [Concomitant]
     Active Substance: RISEDRONATE SODIUM
  13. SULFASALAZINE [Concomitant]
     Active Substance: SULFASALAZINE
  14. SYNTHROID [Concomitant]
     Active Substance: LEVOTHYROXINE SODIUM
  15. TYLENOL WITH CODEINE [Concomitant]
     Active Substance: ACETAMINOPHEN\CODEINE PHOSPHATE

REACTIONS (1)
  - Kidney infection [Unknown]
